FAERS Safety Report 4546644-8 (Version None)
Quarter: 2005Q1

REPORT INFORMATION
  Report Type: 
  Country: None (occurrence: None)
  Receive Date: 20050103
  Receipt Date: 20041213
  Transmission Date: 20050727
  Serious: Yes (Other)
  Sender: FDA-Public Use
  Company Number: FR_041205419

PATIENT
  Age: 81 Year
  Sex: Female

DRUGS (1)
  1. EVISTA [Suspect]
     Indication: OSTEOPOROSIS
     Dosage: 60 MG/1 DAY
     Dates: start: 20040801, end: 20040801

REACTIONS (2)
  - RETINAL VEIN THROMBOSIS [None]
  - VISUAL ACUITY REDUCED [None]
